FAERS Safety Report 11395331 (Version 3)
Quarter: 2015Q4

REPORT INFORMATION
  Report Type: Spontaneous
  Country: US (occurrence: US)
  Receive Date: 20150819
  Receipt Date: 20151130
  Transmission Date: 20160304
  Serious: No
  Sender: FDA-Public Use
  Company Number: US-ACTELION PHARMACEUTICALS US, INC.-A-US2015-122562

PATIENT
  Age: 48 Year
  Sex: Female

DRUGS (4)
  1. VELETRI [Suspect]
     Active Substance: EPOPROSTENOL
     Indication: PULMONARY HYPERTENSION
     Dosage: 22 NG/KG, PER MIN
     Route: 042
  2. VELETRI [Suspect]
     Active Substance: EPOPROSTENOL
     Dosage: 22 NG/KG, PER MIN
     Route: 042
  3. ADCIRCA [Suspect]
     Active Substance: TADALAFIL
     Indication: PRODUCT USED FOR UNKNOWN INDICATION
     Route: 065
  4. RIOCIGUAT [Concomitant]
     Active Substance: RIOCIGUAT

REACTIONS (9)
  - Face oedema [Unknown]
  - Cough [Unknown]
  - Local swelling [Unknown]
  - Diarrhoea [Unknown]
  - Headache [Unknown]
  - Vomiting [Unknown]
  - Abdominal discomfort [Unknown]
  - Somnolence [Unknown]
  - Nausea [Unknown]

NARRATIVE: CASE EVENT DATE: 20151112
